FAERS Safety Report 18286366 (Version 1)
Quarter: 2020Q3

REPORT INFORMATION
  Report Type: Spontaneous
  Country: US (occurrence: US)
  Receive Date: 20200920
  Receipt Date: 20200920
  Transmission Date: 20201103
  Serious: No
  Sender: FDA-Public Use
  Company Number: US-ORCHID HEALTHCARE-2090958

PATIENT
  Sex: Male

DRUGS (2)
  1. UNSPECIFIED PREVENTATIVE MEDICATION FOR MIGRAINES [Concomitant]
     Route: 065
  2. SUMATRIPTAN. [Suspect]
     Active Substance: SUMATRIPTAN
     Indication: MIGRAINE
     Route: 048

REACTIONS (1)
  - Therapeutic product effect decreased [Unknown]
